FAERS Safety Report 17014382 (Version 1)
Quarter: 2019Q4

REPORT INFORMATION
  Report Type: Spontaneous
  Country: IT (occurrence: IT)
  Receive Date: 20191111
  Receipt Date: 20191111
  Transmission Date: 20200122
  Serious: Yes (Other)
  Sender: FDA-Public Use
  Company Number: IT-TEVA-2019-IT-1135461

PATIENT
  Age: 58 Year
  Sex: Male

DRUGS (3)
  1. FLUOROURACIL. [Suspect]
     Active Substance: FLUOROURACIL
     Indication: GASTRIC NEOPLASM
     Dosage: 2318MG / CYCLICAL
     Route: 041
     Dates: start: 20190430, end: 20190917
  2. EPIRUBICIN HYDROCHLORIDE. [Suspect]
     Active Substance: EPIRUBICIN HYDROCHLORIDE
     Indication: GASTRIC NEOPLASM
     Dosage: 82MG/ CYCLICAL
     Route: 042
     Dates: start: 20190430, end: 20190917
  3. CISPLATIN. [Suspect]
     Active Substance: CISPLATIN
     Indication: GASTRIC NEOPLASM
     Dosage: 100MG/ CYCLICAL
     Route: 042
     Dates: start: 20190430, end: 20190917

REACTIONS (1)
  - Neuropathy peripheral [Recovering/Resolving]

NARRATIVE: CASE EVENT DATE: 20190725
